FAERS Safety Report 11558616 (Version 2)
Quarter: 2015Q3

REPORT INFORMATION
  Report Type: Spontaneous
  Country: AU (occurrence: AU)
  Receive Date: 20150928
  Receipt Date: 20150930
  Transmission Date: 20151125
  Serious: Yes (Life-Threatening)
  Sender: FDA-Public Use
  Company Number: AU-ROCHE-1639306

PATIENT
  Age: 89 Year
  Sex: Male

DRUGS (2)
  1. LUCENTIS [Suspect]
     Active Substance: RANIBIZUMAB
     Route: 047
     Dates: start: 20150525, end: 20150525
  2. LUCENTIS [Suspect]
     Active Substance: RANIBIZUMAB
     Indication: NEOVASCULAR AGE-RELATED MACULAR DEGENERATION
     Route: 047
     Dates: start: 20141224

REACTIONS (2)
  - Cerebrovascular accident [Not Recovered/Not Resolved]
  - Visual acuity tests abnormal [Unknown]
